FAERS Safety Report 19201079 (Version 1)
Quarter: 2021Q2

REPORT INFORMATION
  Report Type: Spontaneous
  Country: US (occurrence: US)
  Receive Date: 20210430
  Receipt Date: 20210430
  Transmission Date: 20210717
  Serious: Yes (Hospitalization)
  Sender: FDA-Public Use
  Company Number: None

PATIENT
  Age: 45 Year
  Sex: Female

DRUGS (5)
  1. LISINOPRIL. [Concomitant]
     Active Substance: LISINOPRIL
  2. CREON [Concomitant]
     Active Substance: PANCRELIPASE AMYLASE\PANCRELIPASE LIPASE\PANCRELIPASE PROTEASE
  3. CREON [Suspect]
     Active Substance: PANCRELIPASE AMYLASE\PANCRELIPASE LIPASE\PANCRELIPASE PROTEASE
     Indication: BRONCHIECTASIS
     Dosage: ?          OTHER FREQUENCY:WITH EACH MEAL;?
     Route: 048
     Dates: start: 20201202
  4. CEPHALEXIN. [Concomitant]
     Active Substance: CEPHALEXIN
  5. GABAPENTIN. [Concomitant]
     Active Substance: GABAPENTIN

REACTIONS (4)
  - Memory impairment [None]
  - Hysterectomy [None]
  - Abnormal faeces [None]
  - Therapy interrupted [None]

NARRATIVE: CASE EVENT DATE: 20210421
